FAERS Safety Report 16438135 (Version 3)
Quarter: 2019Q3

REPORT INFORMATION
  Report Type: Spontaneous
  Country: US (occurrence: US)
  Receive Date: 20190617
  Receipt Date: 20190809
  Transmission Date: 20191004
  Serious: No
  Sender: FDA-Public Use
  Company Number: US-ASTRAZENECA-2019SE87346

PATIENT
  Sex: Male
  Weight: 63.5 kg

DRUGS (10)
  1. PERCOCET [Concomitant]
     Active Substance: ACETAMINOPHEN\OXYCODONE HYDROCHLORIDE
  2. XOPENEX HFA [Concomitant]
     Active Substance: LEVALBUTEROL TARTRATE
  3. AMOXICILLIN. [Concomitant]
     Active Substance: AMOXICILLIN
  4. ACALABRUTINIB. [Suspect]
     Active Substance: ACALABRUTINIB
     Indication: CHRONIC LYMPHOCYTIC LEUKAEMIA
     Route: 048
  5. CIALIS [Concomitant]
     Active Substance: TADALAFIL
  6. ALPRAZOLAM. [Concomitant]
     Active Substance: ALPRAZOLAM
  7. AVIDAR [Concomitant]
     Indication: DYSURIA
     Dosage: 1 AT NIGHT
  8. LUNESTA [Concomitant]
     Active Substance: ESZOPICLONE
  9. ZOLPIDEM TARTRATE. [Concomitant]
     Active Substance: ZOLPIDEM TARTRATE
  10. AVODART [Concomitant]
     Active Substance: DUTASTERIDE

REACTIONS (6)
  - Fatigue [Not Recovered/Not Resolved]
  - Off label use [Unknown]
  - Mood swings [Not Recovered/Not Resolved]
  - Feeling abnormal [Not Recovered/Not Resolved]
  - Product use in unapproved indication [Unknown]
  - Confusional state [Not Recovered/Not Resolved]
